FAERS Safety Report 23240681 (Version 1)
Quarter: 2023Q4

REPORT INFORMATION
  Report Type: Spontaneous
  Country: None (occurrence: US)
  Receive Date: 20231129
  Receipt Date: 20231129
  Transmission Date: 20240109
  Serious: No
  Sender: FDA-Public Use
  Company Number: US-STI Pharma LLC-2148783

PATIENT
  Age: 73 Year
  Sex: Male

DRUGS (1)
  1. ETHAMBUTOL HYDROCHLORIDE [Suspect]
     Active Substance: ETHAMBUTOL HYDROCHLORIDE

REACTIONS (4)
  - Abdominal discomfort [Unknown]
  - Pneumonia [Unknown]
  - Bronchiectasis [Unknown]
  - Pulmonary mass [Unknown]
